FAERS Safety Report 5994837-5 (Version None)
Quarter: 2008Q4

REPORT INFORMATION
  Report Type: 
  Country: None (occurrence: None)
  Receive Date: 20081212
  Receipt Date: 20081112
  Transmission Date: 20090506
  Serious: No
  Sender: FDA-Public Use
  Company Number: US-ABBOTT-08P-163-0476440-00

PATIENT
  Sex: Male
  Weight: 86.26 kg

DRUGS (2)
  1. HUMIRA [Suspect]
     Indication: PSORIATIC ARTHROPATHY
     Route: 058
     Dates: start: 20080829, end: 20080901
  2. VICODIN [Concomitant]
     Indication: PAIN
     Dosage: ONCE EVERY 4-6 HOURS AS NEEDED
     Route: 048
     Dates: start: 20080601

REACTIONS (5)
  - CHEST PAIN [None]
  - DRUG INEFFECTIVE [None]
  - DYSPNOEA [None]
  - FEELING JITTERY [None]
  - HYPERHIDROSIS [None]
